FAERS Safety Report 7592699-6 (Version None)
Quarter: 2011Q3

REPORT INFORMATION
  Report Type: 
  Country: None (occurrence: None)
  Receive Date: 20110706
  Receipt Date: 20110630
  Transmission Date: 20111222
  Serious: No
  Sender: FDA-Public Use
  Company Number: US-PFIZER INC-2011146710

PATIENT
  Sex: Female

DRUGS (3)
  1. GLEEVEC [Suspect]
     Dosage: UNK
  2. SUTENT [Suspect]
     Dosage: UNK
  3. SORAFENIB [Suspect]
     Dosage: UNK

REACTIONS (2)
  - NEOPLASM [None]
  - DISEASE PROGRESSION [None]
